FAERS Safety Report 6775302-4 (Version None)
Quarter: 2010Q2

REPORT INFORMATION
  Report Type: 
  Country: None (occurrence: None)
  Receive Date: 20100617
  Receipt Date: 20100607
  Transmission Date: 20101027
  Serious: Yes (Other)
  Sender: FDA-Public Use
  Company Number: US-PFIZER INC-2010071954

PATIENT
  Sex: Female
  Weight: 90.703 kg

DRUGS (7)
  1. CHANTIX [Suspect]
     Indication: SMOKING CESSATION THERAPY
     Dosage: 0.5 MG, 1X/DAY
     Route: 048
  2. NEXIUM [Concomitant]
     Dosage: 40 MG, 1X/DAY
  3. LEXAPRO [Concomitant]
     Dosage: 10 MG, 1X/DAY
  4. LYRICA [Concomitant]
     Dosage: 75 MG, 3X/DAY
  5. LORAZEPAM [Concomitant]
     Dosage: 4 MG, 3X/DAY
  6. ADVAIR DISKUS 100/50 [Concomitant]
     Dosage: UNK, AS NEEDED
  7. ARMODAFINIL [Concomitant]
     Dosage: 150 MG, 1X/DAY

REACTIONS (4)
  - DYSPHONIA [None]
  - DYSPNOEA [None]
  - MUSCULOSKELETAL DISCOMFORT [None]
  - OROMANDIBULAR DYSTONIA [None]
